FAERS Safety Report 11170917 (Version 1)
Quarter: 2015Q2

REPORT INFORMATION
  Report Type: Report from Study
  Country: BR (occurrence: BR)
  Receive Date: 20150608
  Receipt Date: 20150608
  Transmission Date: 20150821
  Serious: Yes (Hospitalization)
  Sender: FDA-Public Use
  Company Number: BR-BIOGENIDEC-2014BI121467

PATIENT
  Age: 35 Year
  Sex: Female

DRUGS (3)
  1. AVONEX [Suspect]
     Active Substance: INTERFERON BETA-1A
     Indication: MULTIPLE SCLEROSIS
     Route: 030
     Dates: start: 20141029
  2. CEFALIV [Concomitant]
     Indication: MIGRAINE
  3. AMATO [Concomitant]
     Active Substance: TOPIRAMATE
     Indication: MIGRAINE

REACTIONS (15)
  - Chest pain [Recovered/Resolved]
  - Paraesthesia [Recovered/Resolved]
  - Injection site haemorrhage [Recovered/Resolved]
  - Tension [Recovered/Resolved]
  - Influenza like illness [Not Recovered/Not Resolved]
  - Dysphagia [Not Recovered/Not Resolved]
  - Myalgia [Not Recovered/Not Resolved]
  - Aspartate aminotransferase abnormal [Not Recovered/Not Resolved]
  - Alanine aminotransferase abnormal [Not Recovered/Not Resolved]
  - Headache [Recovered/Resolved]
  - Epistaxis [Unknown]
  - Migraine [Unknown]
  - Hypoaesthesia oral [Not Recovered/Not Resolved]
  - Pharyngeal hypoaesthesia [Not Recovered/Not Resolved]
  - Dyspnoea [Unknown]

NARRATIVE: CASE EVENT DATE: 20141029
